FAERS Safety Report 23640694 (Version 1)
Quarter: 2024Q1

REPORT INFORMATION
  Report Type: Spontaneous
  Country: US (occurrence: US)
  Receive Date: 20240318
  Receipt Date: 20240318
  Transmission Date: 20240410
  Serious: No
  Sender: FDA-Public Use
  Company Number: US-BIOGEN-2024BI01255210

PATIENT
  Sex: Female

DRUGS (1)
  1. ZURZUVAE [Suspect]
     Active Substance: ZURANOLONE
     Indication: Product used for unknown indication
     Route: 050
     Dates: start: 20240309

REACTIONS (6)
  - Vision blurred [Unknown]
  - Memory impairment [Unknown]
  - Muscle spasms [Unknown]
  - Initial insomnia [Unknown]
  - Headache [Unknown]
  - Anxiety [Unknown]
